FAERS Safety Report 5549806-6 (Version None)
Quarter: 2007Q4

REPORT INFORMATION
  Report Type: 
  Country: None (occurrence: None)
  Receive Date: 20071207
  Receipt Date: 20071207
  Transmission Date: 20080405
  Serious: No
  Sender: FDA-Public Use
  Company Number: None

PATIENT
  Age: 70 Year
  Sex: Male
  Weight: 90.7194 kg

DRUGS (1)
  1. ALLOPURINOL [Suspect]
     Indication: NEUROPATHY
     Dosage: 1/2 TABLET EVERY MORNING PO
     Route: 048
     Dates: start: 20000101, end: 20061211

REACTIONS (2)
  - NEUROPATHY PERIPHERAL [None]
  - OEDEMA PERIPHERAL [None]
